FAERS Safety Report 9644024 (Version 1)
Quarter: 2013Q4

REPORT INFORMATION
  Report Type: Spontaneous
  Country: JP (occurrence: JP)
  Receive Date: 20131024
  Receipt Date: 20131024
  Transmission Date: 20140711
  Serious: Yes (Other)
  Sender: FDA-Public Use
  Company Number: PHHY2013JP117825

PATIENT
  Age: 53 Year
  Sex: Male

DRUGS (13)
  1. ETOPOSIDE SANDOZ [Suspect]
     Indication: ANGIOIMMUNOBLASTIC T-CELL LYMPHOMA
     Dosage: UNK
     Dates: start: 201105
  2. DOXORUBICIN HYDROCHLORIDE SANDOZ [Suspect]
     Indication: ANGIOIMMUNOBLASTIC T-CELL LYMPHOMA
     Dates: start: 201109
  3. CISPLATIN [Suspect]
     Indication: ANGIOIMMUNOBLASTIC T-CELL LYMPHOMA
     Dates: start: 201105
  4. CYTARABINE [Suspect]
     Indication: ANGIOIMMUNOBLASTIC T-CELL LYMPHOMA
     Dates: start: 201105
  5. METHYLPREDNISOLONE [Suspect]
     Indication: ANGIOIMMUNOBLASTIC T-CELL LYMPHOMA
     Dates: start: 201105
  6. VINCRISTINE SULFATE [Suspect]
     Indication: ANGIOIMMUNOBLASTIC T-CELL LYMPHOMA
     Dates: start: 201109
  7. BLEOMYCIN [Suspect]
     Indication: HODGKIN^S DISEASE
     Dates: start: 200809
  8. VINBLASTINE SULFATE [Suspect]
     Indication: HODGKIN^S DISEASE
     Dates: start: 200809
  9. DACARBAZINE [Suspect]
     Indication: HODGKIN^S DISEASE
     Dates: start: 200809
  10. PREDNISOLONE [Suspect]
     Indication: ANGIOIMMUNOBLASTIC T-CELL LYMPHOMA
     Dates: start: 201109
  11. ETOPOSIDE [Suspect]
     Indication: ANGIOIMMUNOBLASTIC T-CELL LYMPHOMA
     Route: 048
  12. CYCLOPHOSPHAMIDE [Suspect]
     Indication: ANGIOIMMUNOBLASTIC T-CELL LYMPHOMA
     Dates: start: 201109
  13. DOXORUBICIN HYDROCHLORIDE [Suspect]
     Indication: HODGKIN^S DISEASE
     Dates: start: 200809

REACTIONS (1)
  - Acute promyelocytic leukaemia [Unknown]
